FAERS Safety Report 4287876-6 (Version None)
Quarter: 2004Q1

REPORT INFORMATION
  Report Type: 
  Country: None (occurrence: None)
  Receive Date: 20040209
  Receipt Date: 20031020
  Transmission Date: 20041129
  Serious: No
  Sender: FDA-Public Use
  Company Number: US-GLAXOSMITHKLINE-A0430895A

PATIENT
  Age: 40 Year
  Sex: Male

DRUGS (3)
  1. PAXIL [Suspect]
     Indication: PANIC DISORDER
     Dosage: 12.5MG PER DAY
     Route: 048
     Dates: start: 20031015, end: 20031020
  2. WELLBUTRIN SR [Suspect]
     Indication: ANXIETY
     Dosage: 150MG PER DAY
     Route: 048
     Dates: start: 20030901, end: 20031001
  3. AMBIEN [Concomitant]

REACTIONS (7)
  - ANOREXIA [None]
  - DYSKINESIA [None]
  - EUPHORIC MOOD [None]
  - LIBIDO DECREASED [None]
  - LOOSE STOOLS [None]
  - PANIC ATTACK [None]
  - WEIGHT DECREASED [None]
